FAERS Safety Report 6648754-8 (Version None)
Quarter: 2010Q1

REPORT INFORMATION
  Report Type: 
  Country: None (occurrence: None)
  Receive Date: 20100324
  Receipt Date: 20100311
  Transmission Date: 20100710
  Serious: Yes (Other)
  Sender: FDA-Public Use
  Company Number: US-PFIZER INC-2010035066

PATIENT
  Sex: Male

DRUGS (2)
  1. GEODON [Suspect]
     Dosage: 120 MG, UNK
  2. LUVOX [Concomitant]
     Dosage: UNK

REACTIONS (1)
  - RESTLESS LEGS SYNDROME [None]
